FAERS Safety Report 17553030 (Version 2)
Quarter: 2020Q1

REPORT INFORMATION
  Report Type: Report from Study
  Country: US (occurrence: US)
  Receive Date: 20200317
  Receipt Date: 20200319
  Transmission Date: 20200409
  Serious: Yes (Hospitalization)
  Sender: FDA-Public Use
  Company Number: PHHO2019US008376

PATIENT
  Age: 71 Year
  Sex: Male

DRUGS (10)
  1. BEOVU [Suspect]
     Active Substance: BROLUCIZUMAB-DBLL
     Indication: DIABETIC RETINAL OEDEMA
     Dosage: NO TREATMENT
     Route: 065
  2. BEOVU [Suspect]
     Active Substance: BROLUCIZUMAB-DBLL
     Dosage: 3 MG/0.05 ML
     Route: 031
     Dates: start: 20190815
  3. GLIPIZIDE. [Concomitant]
     Active Substance: GLIPIZIDE
     Indication: TYPE 2 DIABETES MELLITUS
     Dosage: UNK
     Route: 065
     Dates: start: 20030101
  4. DILTIAZEM. [Concomitant]
     Active Substance: DILTIAZEM
     Indication: TACHYCARDIA
     Dosage: UNK
     Route: 065
     Dates: start: 20190401
  5. ZOLPIDEM [Concomitant]
     Active Substance: ZOLPIDEM TARTRATE
     Indication: INSOMNIA
     Dosage: UNK
     Route: 065
     Dates: start: 20190501
  6. HYDROCHLOROTHIAZIDE. [Concomitant]
     Active Substance: HYDROCHLOROTHIAZIDE
     Indication: HYPERTENSION
     Dosage: UNK
     Route: 065
     Dates: start: 20150101, end: 20190813
  7. APIXABAN [Concomitant]
     Active Substance: APIXABAN
     Indication: ATRIAL FLUTTER
     Dosage: UNK
     Route: 065
     Dates: start: 20190401
  8. TRAMADOL. [Concomitant]
     Active Substance: TRAMADOL
     Indication: ARTHRALGIA
     Dosage: UNK
     Route: 065
     Dates: start: 20180101
  9. ELIQUIS [Concomitant]
     Active Substance: APIXABAN
     Indication: ATRIAL FLUTTER
     Dosage: UNK
     Route: 065
     Dates: start: 20190501
  10. ISOSORBIDE. [Concomitant]
     Active Substance: ISOSORBIDE
     Indication: TACHYCARDIA
     Dosage: UNK
     Route: 065
     Dates: start: 20150101

REACTIONS (1)
  - Tachycardia [Recovered/Resolved]

NARRATIVE: CASE EVENT DATE: 20190808
